FAERS Safety Report 22643023 (Version 1)
Quarter: 2023Q2

REPORT INFORMATION
  Report Type: Spontaneous
  Country: NL (occurrence: NL)
  Receive Date: 20230627
  Receipt Date: 20230627
  Transmission Date: 20230722
  Serious: Yes (Life-Threatening, Hospitalization, Other)
  Sender: FDA-Public Use
  Company Number: NL-LRB-00886871

PATIENT
  Sex: Female
  Weight: 64 kg

DRUGS (1)
  1. ETHINYL ESTRADIOL\LEVONORGESTREL [Suspect]
     Active Substance: ETHINYL ESTRADIOL\LEVONORGESTREL
     Indication: Contraception
     Dosage: 1 DOSAGE FORM, ONCE A DAY (1X THE 1)
     Route: 065
     Dates: start: 20170101

REACTIONS (1)
  - Cerebral venous sinus thrombosis [Not Recovered/Not Resolved]
